FAERS Safety Report 8789780 (Version 1)
Quarter: 2012Q4

REPORT INFORMATION
  Report Type: Spontaneous
  Country: US (occurrence: None)
  Receive Date: 20120911
  Receipt Date: 20120911
  Transmission Date: 20130627
  Serious: No
  Sender: FDA-Public Use
  Company Number: None

PATIENT
  Age: 9 Year
  Sex: Female

DRUGS (1)
  1. NUTROPIN AQ NUSPIN 10 [Suspect]
     Indication: PITUITARY DWARFISM
     Dosage: 1.3mg daily; sq
     Route: 058
     Dates: start: 20120529

REACTIONS (3)
  - Abdominal pain upper [None]
  - Headache [None]
  - Feeling abnormal [None]
